FAERS Safety Report 18239237 (Version 1)
Quarter: 2020Q3

REPORT INFORMATION
  Report Type: Spontaneous
  Country: ES (occurrence: ES)
  Receive Date: 20200907
  Receipt Date: 20200907
  Transmission Date: 20201103
  Serious: Yes (Other)
  Sender: FDA-Public Use
  Company Number: ES-US-PROVELL PHARMACEUTICALS LLC-E2B_90079850

PATIENT
  Sex: Female
  Weight: 56 kg

DRUGS (1)
  1. EUTIROX [Suspect]
     Active Substance: LEVOTHYROXINE SODIUM
     Indication: HYPOTHYROIDISM
     Dosage: ON AN EMPTY STOMACH, 1 TABLET A DAY, 30 MIN BEFORE BREAKFAST
     Route: 048
     Dates: start: 20200813

REACTIONS (4)
  - Chest pain [Not Recovered/Not Resolved]
  - Anxiety [Not Recovered/Not Resolved]
  - Abdominal pain upper [Not Recovered/Not Resolved]
  - Diarrhoea [Not Recovered/Not Resolved]

NARRATIVE: CASE EVENT DATE: 20200816
